FAERS Safety Report 11672495 (Version 1)
Quarter: 2015Q4

REPORT INFORMATION
  Report Type: Spontaneous
  Country: US (occurrence: US)
  Receive Date: 20151027
  Receipt Date: 20151027
  Transmission Date: 20160304
  Serious: No
  Sender: FDA-Public Use
  Company Number: US-ELI_LILLY_AND_COMPANY-US201006006608

PATIENT
  Age: 81 Year
  Sex: Female

DRUGS (1)
  1. FORTEO [Suspect]
     Active Substance: TERIPARATIDE
     Dosage: UNK, UNKNOWN

REACTIONS (6)
  - Hypersomnia [Unknown]
  - Blood calcium increased [Unknown]
  - Vitamin D decreased [Unknown]
  - Bone pain [Not Recovered/Not Resolved]
  - Bone disorder [Unknown]
  - Skeletal injury [Unknown]
